FAERS Safety Report 17906395 (Version 1)
Quarter: 2020Q2

REPORT INFORMATION
  Report Type: Spontaneous
  Country: US (occurrence: US)
  Receive Date: 20200616
  Receipt Date: 20200616
  Transmission Date: 20200714
  Serious: No
  Sender: FDA-Public Use
  Company Number: US-ROCHE-2554268

PATIENT

DRUGS (1)
  1. ACTEMRA [Suspect]
     Active Substance: TOCILIZUMAB
     Indication: PRODUCT USED FOR UNKNOWN INDICATION
     Dosage: ACTPEN 180 MG IN 1 ML
     Route: 058

REACTIONS (4)
  - Occupational exposure to product [Unknown]
  - Exposure via skin contact [Unknown]
  - Device malfunction [Unknown]
  - Product quality issue [Unknown]
